FAERS Safety Report 18382202 (Version 1)
Quarter: 2020Q4

REPORT INFORMATION
  Report Type: Spontaneous
  Country: US (occurrence: US)
  Receive Date: 20201013
  Receipt Date: 20201013
  Transmission Date: 20210114
  Serious: Yes (Other)
  Sender: FDA-Public Use
  Company Number: None

PATIENT
  Age: 57 Year
  Sex: Female
  Weight: 90 kg

DRUGS (10)
  1. RESPERDAL [Concomitant]
  2. KLONOPIN [Concomitant]
     Active Substance: CLONAZEPAM
  3. B6 [Concomitant]
     Active Substance: PYRIDOXINE HYDROCHLORIDE
  4. LATUDA [Suspect]
     Active Substance: LURASIDONE HYDROCHLORIDE
     Indication: DEPRESSION
     Route: 048
     Dates: start: 19630204, end: 20200215
  5. ZINC. [Concomitant]
     Active Substance: ZINC
  6. FISH OIL [Concomitant]
     Active Substance: FISH OIL
  7. VITAMIN D3 [Concomitant]
     Active Substance: CHOLECALCIFEROL
  8. LAMOTRAGENE [Concomitant]
  9. PROPRANOLOL [Concomitant]
     Active Substance: PROPRANOLOL HYDROCHLORIDE
  10. GABAPENTIN. [Concomitant]
     Active Substance: GABAPENTIN

REACTIONS (8)
  - Akathisia [None]
  - Restlessness [None]
  - Movement disorder [None]
  - Negative thoughts [None]
  - Panic attack [None]
  - Pain [None]
  - Paraesthesia [None]
  - Burning sensation [None]

NARRATIVE: CASE EVENT DATE: 19630204
